FAERS Safety Report 20738206 (Version 2)
Quarter: 2022Q2

REPORT INFORMATION
  Report Type: Report from Study
  Country: ES (occurrence: ES)
  Receive Date: 20220422
  Receipt Date: 20220426
  Transmission Date: 20220721
  Serious: Yes (Hospitalization, Other)
  Sender: FDA-Public Use
  Company Number: ES-BEH-2022144329

PATIENT
  Age: 67 Year
  Sex: Male
  Weight: 84 kg

DRUGS (3)
  1. RIASTAP [Suspect]
     Active Substance: FIBRINOGEN HUMAN
     Indication: Hypofibrinogenaemia
     Dosage: 2 GRAM
     Route: 042
     Dates: start: 20201213, end: 20201213
  2. TACROLIMUS [Concomitant]
     Active Substance: TACROLIMUS
     Indication: Immunosuppression
     Dosage: 1 MILLIGRAM/ 24 H
     Route: 048
     Dates: start: 20201216
  3. EVEROLIMUS [Concomitant]
     Active Substance: EVEROLIMUS
     Indication: Immunosuppression
     Dosage: 1 MILLIGRAM / 24 H
     Route: 048
     Dates: start: 20201216

REACTIONS (9)
  - Pneumonia cytomegaloviral [Recovered/Resolved]
  - Dyspnoea [Recovered/Resolved]
  - Cytomegalovirus enteritis [Recovered/Resolved]
  - Hyponatraemia [Unknown]
  - Weight increased [Unknown]
  - Pleural effusion [Unknown]
  - Diverticulitis [Recovered/Resolved]
  - Pyrexia [Recovered/Resolved]
  - Cytomegalovirus infection [Recovered/Resolved]

NARRATIVE: CASE EVENT DATE: 20210210
